FAERS Safety Report 25351220 (Version 1)
Quarter: 2025Q2

REPORT INFORMATION
  Report Type: Spontaneous
  Country: CN (occurrence: CN)
  Receive Date: 20250523
  Receipt Date: 20250523
  Transmission Date: 20250717
  Serious: Yes (Other)
  Sender: AMGEN
  Company Number: CN-AMGEN-CHNSP2025099216

PATIENT
  Age: 56 Year
  Sex: Female

DRUGS (1)
  1. XGEVA [Suspect]
     Active Substance: DENOSUMAB
     Indication: Tumour treating fields therapy
     Route: 058
     Dates: start: 20250423, end: 20250423

REACTIONS (2)
  - Thrombocytopenia [Recovering/Resolving]
  - Granulocytopenia [Recovering/Resolving]
